FAERS Safety Report 5343523-3 (Version None)
Quarter: 2007Q2

REPORT INFORMATION
  Report Type: 
  Country: None (occurrence: None)
  Receive Date: 20070604
  Receipt Date: 20070525
  Transmission Date: 20071010
  Serious: Yes (Other)
  Sender: FDA-Public Use
  Company Number: PHBS2007CH08858

PATIENT
  Sex: Female

DRUGS (1)
  1. ZOLEDRONATE [Suspect]
     Dosage: 4 MG/MONTH
     Route: 042

REACTIONS (2)
  - BONE DISORDER [None]
  - OSTEONECROSIS [None]
